FAERS Safety Report 8389993-8 (Version None)
Quarter: 2012Q2

REPORT INFORMATION
  Report Type: 
  Country: None (occurrence: None)
  Receive Date: 20120516
  Receipt Date: 20120430
  Transmission Date: 20120825
  Serious: Yes (Congenital Anomaly)
  Sender: FDA-Public Use
  Company Number: WAES 1204USA04448B1

PATIENT
  Sex: Male
  Weight: 2.87 kg

DRUGS (4)
  1. REYATAZ [Suspect]
     Indication: HIV INFECTION
     Dosage: 300 MG, DAILY, TRANSPLACENTAL
     Route: 064
     Dates: start: 20111101, end: 20120127
  2. ISENTRESS [Suspect]
     Indication: HIV INFECTION
     Dosage: 800 MG, DAILY, TRANSP
     Route: 064
     Dates: start: 20111110, end: 20120127
  3. TRUVADA [Suspect]
     Indication: HIV INFECTION
     Dosage: 1 TAB, DAILY, TRANSPLA
     Route: 064
     Dates: start: 20111101, end: 20120127
  4. NORVIR [Suspect]
     Indication: HIV INFECTION
     Dosage: 100 MG, DAILY, TRANSPLACENTAL
     Route: 064
     Dates: start: 20111101, end: 20120127

REACTIONS (2)
  - MATERNAL DRUGS AFFECTING FOETUS [None]
  - AORTA HYPOPLASIA [None]
